FAERS Safety Report 8258171-5 (Version None)
Quarter: 2012Q2

REPORT INFORMATION
  Report Type: 
  Country: None (occurrence: None)
  Receive Date: 20120404
  Receipt Date: 20120329
  Transmission Date: 20120825
  Serious: Yes (Death, Other)
  Sender: FDA-Public Use
  Company Number: PHEH2012US005806

PATIENT
  Sex: Male
  Weight: 94.348 kg

DRUGS (1)
  1. GLEEVEC [Suspect]
     Indication: CHRONIC MYELOID LEUKAEMIA
     Dosage: 400 MG, QD
     Route: 048
     Dates: start: 20100112

REACTIONS (2)
  - MULTIMORBIDITY [None]
  - GENERAL PHYSICAL HEALTH DETERIORATION [None]
